FAERS Safety Report 5678114-8 (Version None)
Quarter: 2008Q1

REPORT INFORMATION
  Report Type: 
  Country: None (occurrence: None)
  Receive Date: 20080319
  Receipt Date: 20080311
  Transmission Date: 20080703
  Serious: Yes (Other)
  Sender: FDA-Public Use
  Company Number: 18682

PATIENT
  Age: 62 Year
  Sex: Female

DRUGS (2)
  1. CYTARABINE [Suspect]
     Indication: ACUTE MONOCYTIC LEUKAEMIA
  2. IDARUBICIN HCL [Suspect]
     Indication: ACUTE MONOCYTIC LEUKAEMIA

REACTIONS (2)
  - ENTEROBACTER SEPSIS [None]
  - NEUTROPENIC COLITIS [None]
